FAERS Safety Report 18270482 (Version 1)
Quarter: 2020Q3

REPORT INFORMATION
  Report Type: Spontaneous
  Country: GB (occurrence: GB)
  Receive Date: 20200915
  Receipt Date: 20200915
  Transmission Date: 20201103
  Serious: Yes (Other)
  Sender: FDA-Public Use
  Company Number: GB-MYLANLABS-2020M1077902

PATIENT
  Age: 40 Year
  Sex: Female
  Weight: 84 kg

DRUGS (8)
  1. METFORMIN [Concomitant]
     Active Substance: METFORMIN HYDROCHLORIDE
     Dosage: 4 DOSAGE FORM, QD
     Dates: start: 20190213
  2. CLARITHROMYCIN. [Suspect]
     Active Substance: CLARITHROMYCIN
     Indication: ILL-DEFINED DISORDER
     Dosage: 250 MILLIGRAM
     Dates: start: 20200813
  3. PROCHLORPERAZINE. [Concomitant]
     Active Substance: PROCHLORPERAZINE
     Dosage: TDS
     Dates: start: 20200806
  4. HYDROXOCOBALAMIN [Concomitant]
     Active Substance: HYDROXOCOBALAMIN
     Dosage: INITIALLY 1MG TO BE ADMINISTERED THREE TIMES A .
     Dates: start: 20190611
  5. PANTOPRAZOLE [Concomitant]
     Active Substance: PANTOPRAZOLE
     Dosage: 2 DOSAGE FORM, QD
     Dates: start: 20200806
  6. FERROUS FUMARATE [Concomitant]
     Active Substance: FERROUS FUMARATE
     Dosage: 2 DOSAGE FORM, QD
     Dates: start: 20200806
  7. PROPRANOLOL [Concomitant]
     Active Substance: PROPRANOLOL HYDROCHLORIDE
     Dosage: 2 DOSAGE FORM, QD
     Dates: start: 20200714, end: 20200811
  8. OMEPRAZOLE. [Concomitant]
     Active Substance: OMEPRAZOLE
     Dosage: TAKE ONE ?TWO CAPSULE DAILY
     Dates: start: 20200714, end: 20200811

REACTIONS (6)
  - Panic reaction [Unknown]
  - Somnolence [Recovered/Resolved]
  - Lethargy [Unknown]
  - Feeling abnormal [Unknown]
  - Anxiety [Recovered/Resolved]
  - Asthenia [Recovered/Resolved]

NARRATIVE: CASE EVENT DATE: 20200813
